FAERS Safety Report 23494541 (Version 1)
Quarter: 2024Q1

REPORT INFORMATION
  Report Type: Spontaneous
  Country: NO (occurrence: NO)
  Receive Date: 20240207
  Receipt Date: 20240207
  Transmission Date: 20240410
  Serious: Yes (Life-Threatening, Hospitalization, Other)
  Sender: FDA-Public Use
  Company Number: None

PATIENT
  Age: 21 Year
  Sex: Female
  Weight: 72 kg

DRUGS (1)
  1. ETHINYL ESTRADIOL\LEVONORGESTREL [Suspect]
     Active Substance: ETHINYL ESTRADIOL\LEVONORGESTREL
     Indication: Contraception
     Route: 048
     Dates: start: 2017, end: 20240107

REACTIONS (12)
  - Loss of consciousness [Unknown]
  - Facial discomfort [Unknown]
  - Facial asymmetry [Recovered/Resolved]
  - Pyrexia [Unknown]
  - Head discomfort [Unknown]
  - Dysgeusia [Unknown]
  - Cerebral venous thrombosis [Recovering/Resolving]
  - Drooling [Recovered/Resolved]
  - Muscle spasms [Unknown]
  - Speech disorder [Recovered/Resolved]
  - Headache [Unknown]
  - Hypoaesthesia oral [Recovered/Resolved]

NARRATIVE: CASE EVENT DATE: 20240101
